FAERS Safety Report 16002616 (Version 4)
Quarter: 2019Q2

REPORT INFORMATION
  Report Type: Spontaneous
  Country: US (occurrence: US)
  Receive Date: 20190225
  Receipt Date: 20190403
  Transmission Date: 20190711
  Serious: Yes (Hospitalization)
  Sender: FDA-Public Use
  Company Number: US-SA-2019SA044991

PATIENT
  Age: 59 Year
  Sex: Female

DRUGS (32)
  1. VITAMIN D3 [Concomitant]
     Active Substance: CHOLECALCIFEROL
  2. HUMALOG [Concomitant]
     Active Substance: INSULIN LISPRO
  3. GUAIATUSSIN AC [Concomitant]
     Active Substance: CODEINE PHOSPHATE\GUAIFENESIN
  4. AMLODIPINE BESYLATE. [Concomitant]
     Active Substance: AMLODIPINE BESYLATE
  5. DUPIXENT [Suspect]
     Active Substance: DUPILUMAB
     Indication: DERMATITIS ATOPIC
     Dosage: 600 MG, 1X
     Route: 058
     Dates: start: 20190130, end: 20190130
  6. TOUJEO [Concomitant]
     Active Substance: INSULIN GLARGINE
  7. POTASSIUM CHLORIDE. [Concomitant]
     Active Substance: POTASSIUM CHLORIDE
  8. ASPIRIN [ACETYLSALICYLIC ACID] [Concomitant]
     Active Substance: ASPIRIN
  9. HYDROCHLOROTHIAZIDE. [Concomitant]
     Active Substance: HYDROCHLOROTHIAZIDE
  10. DYMISTA [Concomitant]
     Active Substance: AZELASTINE HYDROCHLORIDE\FLUTICASONE PROPIONATE
  11. PANTOPRAZOLE SODIUM. [Concomitant]
     Active Substance: PANTOPRAZOLE SODIUM
  12. EPINEPHRINE. [Concomitant]
     Active Substance: EPINEPHRINE
  13. BACLOFEN. [Concomitant]
     Active Substance: BACLOFEN
  14. COLACE [Concomitant]
     Active Substance: DOCUSATE SODIUM
  15. DUPIXENT [Suspect]
     Active Substance: DUPILUMAB
     Dosage: 300 MG, QOW
     Route: 058
     Dates: start: 201902
  16. CALCIUM CARBONATE. [Concomitant]
     Active Substance: CALCIUM CARBONATE
  17. PREDNISONE. [Concomitant]
     Active Substance: PREDNISONE
  18. FUROSEMIDE. [Concomitant]
     Active Substance: FUROSEMIDE
  19. LOSARTAN POTASSIUM. [Concomitant]
     Active Substance: LOSARTAN POTASSIUM
  20. ZILEUTON. [Concomitant]
     Active Substance: ZILEUTON
  21. AZITHROMYCIN ANHYDROUS. [Concomitant]
     Active Substance: AZITHROMYCIN ANHYDROUS
  22. DULERA [Concomitant]
     Active Substance: FORMOTEROL FUMARATE DIHYDRATE\MOMETASONE FUROATE
  23. SERTRALINE [Concomitant]
     Active Substance: SERTRALINE HYDROCHLORIDE
  24. FEXOFENADINE [Concomitant]
     Active Substance: FEXOFENADINE\FEXOFENADINE HYDROCHLORIDE
  25. QVAR [Concomitant]
     Active Substance: BECLOMETHASONE DIPROPIONATE
  26. RANITIDINE. [Concomitant]
     Active Substance: RANITIDINE
  27. CARBAMAZEPINE. [Concomitant]
     Active Substance: CARBAMAZEPINE
  28. CEFADROXIL. [Concomitant]
     Active Substance: CEFADROXIL
  29. SPIRIVA [Concomitant]
     Active Substance: TIOTROPIUM BROMIDE MONOHYDRATE
  30. OXYCODONE [Concomitant]
     Active Substance: OXYCODONE
  31. CYCLOBENZAPRINE. [Concomitant]
     Active Substance: CYCLOBENZAPRINE
  32. VITRON-C [Concomitant]
     Active Substance: ASCORBIC ACID\IRON

REACTIONS (7)
  - Pruritus [Unknown]
  - Pruritus [Unknown]
  - Skin swelling [Unknown]
  - Injection site pain [Unknown]
  - Dry skin [Unknown]
  - Dermatitis atopic [Unknown]
  - Asthma [Unknown]

NARRATIVE: CASE EVENT DATE: 20190130
